FAERS Safety Report 6591962-5 (Version None)
Quarter: 2010Q1

REPORT INFORMATION
  Report Type: 
  Country: None (occurrence: None)
  Receive Date: 20100221
  Receipt Date: 20090909
  Transmission Date: 20100710
  Serious: No
  Sender: FDA-Public Use
  Company Number: US-ALLERGAN-0911610US

PATIENT
  Age: 49 Year
  Sex: Female
  Weight: 69.388 kg

DRUGS (1)
  1. BOTOX COSMETIC [Suspect]
     Indication: SKIN WRINKLING
     Dosage: 55 UNITS, SINGLE
     Route: 030
     Dates: start: 20090805, end: 20090805

REACTIONS (2)
  - FACIAL PARESIS [None]
  - WRONG TECHNIQUE IN DRUG USAGE PROCESS [None]
